FAERS Safety Report 6973160-6 (Version None)
Quarter: 2010Q3

REPORT INFORMATION
  Report Type: 
  Country: None (occurrence: None)
  Receive Date: 20100909
  Receipt Date: 20100831
  Transmission Date: 20110219
  Serious: Yes (Death, Other)
  Sender: FDA-Public Use
  Company Number: AT-JNJFOC-20100902250

PATIENT
  Age: 42 Year
  Sex: Male

DRUGS (3)
  1. CLADRIBINE [Suspect]
     Indication: SYSTEMIC MASTOCYTOSIS
     Dosage: 2-HOUR INFUSION ON 5 CONSECUTIVE DAYS
     Route: 042
  2. HISTAMINE RECEPTOR ANTAGONISTS [Concomitant]
     Indication: PRODUCT USED FOR UNKNOWN INDICATION
     Route: 065
  3. GLUCOCORTICOSTEROIDS [Concomitant]
     Indication: PRODUCT USED FOR UNKNOWN INDICATION
     Route: 065

REACTIONS (4)
  - DRUG INEFFECTIVE [None]
  - NAUSEA [None]
  - NEUTROPENIA [None]
  - SYSTEMIC MASTOCYTOSIS [None]
